FAERS Safety Report 4357622-6 (Version None)
Quarter: 2004Q2

REPORT INFORMATION
  Report Type: 
  Country: None (occurrence: None)
  Receive Date: 20040510
  Receipt Date: 20040430
  Transmission Date: 20050107
  Serious: Yes (Other)
  Sender: FDA-Public Use
  Company Number: 2004211506AR

PATIENT
  Age: 50 Year
  Sex: Male

DRUGS (5)
  1. LINEZOLID (LINEZOLID) TABLET [Suspect]
     Indication: TUBERCULOSIS
     Dosage: 600 MG, BID, ORAL
     Route: 048
     Dates: start: 20031008, end: 20040429
  2. CYCLOSERINE [Concomitant]
  3. THIORIDAZINE HCL [Concomitant]
  4. CLOFAZIMINE [Concomitant]
  5. ETHAMBUTOL HCL [Concomitant]

REACTIONS (3)
  - OPTIC NEURITIS [None]
  - PARAESTHESIA [None]
  - VISION BLURRED [None]
